FAERS Safety Report 6971522-4 (Version None)
Quarter: 2010Q3

REPORT INFORMATION
  Report Type: 
  Country: None (occurrence: None)
  Receive Date: 20100908
  Receipt Date: 20100827
  Transmission Date: 20110219
  Serious: Yes (Hospitalization)
  Sender: FDA-Public Use
  Company Number: GXKR2010FR09791

PATIENT
  Age: 63 Year
  Sex: Male

DRUGS (1)
  1. METHYLPREDNISOLONE 4MG TAB [Suspect]
     Indication: MULTIPLE SCLEROSIS
     Dosage: 1 G, UNK
     Dates: start: 20061201, end: 20080301

REACTIONS (3)
  - PHARYNGEAL HAEMORRHAGE [None]
  - PURPURA [None]
  - THROMBOCYTOPENIA [None]
